FAERS Safety Report 9232957 (Version 3)
Quarter: 2024Q3

REPORT INFORMATION
  Report Type: Report from Study
  Country: CA (occurrence: CA)
  Receive Date: 20130416
  Receipt Date: 20240912
  Transmission Date: 20241016
  Serious: Yes (Other)
  Sender: JOHNSON AND JOHNSON
  Company Number: CA-JNJFOC-20130401885

PATIENT
  Age: 52 Year
  Sex: Female
  Weight: 54.48 kg

DRUGS (1)
  1. REMICADE [Suspect]
     Active Substance: INFLIXIMAB
     Indication: Crohn^s disease
     Dosage: IT WAS REPORTED PATIENT WAS TAKEN OFF INFLIXIMAB ON OCT-2012 AND WAS PRESCRIBED HUMIRA AFTER THAT
     Route: 041
     Dates: end: 201206

REACTIONS (2)
  - Gastrointestinal inflammation [Unknown]
  - Therapeutic response decreased [Unknown]
